FAERS Safety Report 11623967 (Version 1)
Quarter: 2015Q4

REPORT INFORMATION
  Report Type: Spontaneous
  Country: US (occurrence: US)
  Receive Date: 20151013
  Receipt Date: 20151013
  Transmission Date: 20160304
  Serious: No
  Sender: FDA-Public Use
  Company Number: US-JNJFOC-20150908850

PATIENT
  Age: 66 Year
  Sex: Female
  Weight: 65.77 kg

DRUGS (12)
  1. KLOR-CON [Concomitant]
     Active Substance: POTASSIUM CHLORIDE
     Indication: BLOOD POTASSIUM
     Dosage: 3 PILLS
     Route: 065
  2. TOPAMAX [Concomitant]
     Active Substance: TOPIRAMATE
     Indication: SYNCOPE
     Route: 065
  3. CYTOMEL [Concomitant]
     Active Substance: LIOTHYRONINE SODIUM
     Indication: THYROID DISORDER
     Dosage: YEARS
     Route: 065
  4. NEURONTIN [Concomitant]
     Active Substance: GABAPENTIN
     Indication: INFLAMMATION
     Dosage: BROKEN UP
     Route: 065
  5. LASIX [Concomitant]
     Active Substance: FUROSEMIDE
     Indication: LYMPHOEDEMA
     Route: 065
  6. UNKNOWN MEDICATION [Concomitant]
     Active Substance: UNSPECIFIED INGREDIENT
     Indication: LICHEN PLANUS
     Route: 065
  7. MIDODRINE [Concomitant]
     Active Substance: MIDODRINE
     Indication: SYNCOPE
     Dosage: 2005
     Route: 065
  8. MENS ROGAINE EXTRA STRENGTH [Suspect]
     Active Substance: MINOXIDIL
     Indication: LICHEN PLANUS
     Dosage: A CAPFUL AMOUNT
     Route: 061
     Dates: start: 20150905, end: 20150909
  9. TERCIN [Concomitant]
     Indication: THYROID DISORDER
     Route: 065
  10. MENS ROGAINE EXTRA STRENGTH [Suspect]
     Active Substance: MINOXIDIL
     Route: 061
  11. LASIX [Concomitant]
     Active Substance: FUROSEMIDE
     Indication: OEDEMA
     Route: 065
  12. QUININE [Concomitant]
     Active Substance: QUININE
     Indication: LICHEN PLANUS
     Route: 065

REACTIONS (8)
  - Product use issue [Unknown]
  - Hair disorder [Recovered/Resolved]
  - Erythema [Recovered/Resolved]
  - Product lot number issue [Unknown]
  - Hair texture abnormal [Recovered/Resolved]
  - Wrong patient received medication [Unknown]
  - Product formulation issue [Unknown]
  - Pain [Recovered/Resolved]

NARRATIVE: CASE EVENT DATE: 20150905
